FAERS Safety Report 9977271 (Version 1)
Quarter: 2014Q1

REPORT INFORMATION
  Report Type: Report from Study
  Country: US (occurrence: US)
  Receive Date: 20140306
  Receipt Date: 20140306
  Transmission Date: 20141002
  Serious: No
  Sender: FDA-Public Use
  Company Number: US-ABBVIE-13P-163-1168048-00

PATIENT
  Age: 42 Year
  Sex: Female

DRUGS (6)
  1. HUMIRA [Suspect]
     Indication: CROHN^S DISEASE
     Dates: start: 20131107, end: 20131107
  2. HUMIRA [Suspect]
     Dates: start: 20131108, end: 20131108
  3. HUMIRA [Suspect]
  4. SYNTHROID [Concomitant]
     Indication: THYROID DISORDER
  5. XANAX [Concomitant]
     Indication: ANXIOLYTIC THERAPY
  6. METFORMIN [Concomitant]
     Indication: DIABETES MELLITUS

REACTIONS (2)
  - Injection site pain [Recovered/Resolved]
  - Injection site pain [Recovered/Resolved]
